FAERS Safety Report 5451781-X (Version None)
Quarter: 2007Q3

REPORT INFORMATION
  Report Type: 
  Country: None (occurrence: None)
  Receive Date: 20070913
  Receipt Date: 20070910
  Transmission Date: 20080115
  Serious: Yes (Hospitalization, Other)
  Sender: FDA-Public Use
  Company Number: GB-MERCK-0708GBR00027

PATIENT
  Age: 38 Year
  Sex: Male
  Weight: 67 kg

DRUGS (15)
  1. COZAAR [Suspect]
     Indication: SYSTEMIC SCLEROSIS
     Route: 048
     Dates: start: 20050201, end: 20050613
  2. ILOPROST [Suspect]
     Indication: SYSTEMIC SCLEROSIS
     Route: 041
     Dates: start: 20050201
  3. NIFEDIPINE [Suspect]
     Indication: SYSTEMIC SCLEROSIS
     Route: 065
     Dates: start: 20040301
  4. CLOPIDOGREL BISULFATE [Suspect]
     Indication: SYSTEMIC SCLEROSIS
     Route: 065
     Dates: start: 20040101, end: 20060301
  5. FLUOXETINE [Suspect]
     Indication: SYSTEMIC SCLEROSIS
     Route: 065
     Dates: start: 20050713
  6. LANSOPRAZOLE [Suspect]
     Indication: SYSTEMIC SCLEROSIS
     Route: 065
     Dates: start: 20040301
  7. METHYLPREDNISOLONE [Suspect]
     Indication: ISCHAEMIA
     Route: 065
     Dates: start: 20050501
  8. METHYLPREDNISOLONE [Suspect]
     Indication: HYPERSENSITIVITY
     Route: 065
     Dates: start: 20050501
  9. CYCLOPHOSPHAMIDE [Suspect]
     Indication: ISCHAEMIA
     Route: 065
     Dates: start: 20050501, end: 20050907
  10. BOSENTAN [Suspect]
     Indication: ANGIOPATHY
     Route: 065
     Dates: start: 20050809
  11. BOSENTAN [Suspect]
     Route: 065
  12. FERROUS SULFATE [Concomitant]
     Route: 065
  13. PENTOXIFYLLINE [Concomitant]
     Indication: ANGIOPATHY
     Route: 065
  14. LISINOPRIL [Concomitant]
     Route: 065
     Dates: start: 20050601
  15. SILDENAFIL CITRATE [Concomitant]
     Indication: ANGIOPATHY
     Route: 065

REACTIONS (3)
  - DRUG INEFFECTIVE [None]
  - RASH MACULAR [None]
  - SYSTEMIC SCLEROSIS [None]
